FAERS Safety Report 17403395 (Version 3)
Quarter: 2020Q1

REPORT INFORMATION
  Report Type: Spontaneous
  Country: US (occurrence: US)
  Receive Date: 20200211
  Receipt Date: 20200327
  Transmission Date: 20200409
  Serious: Yes (Hospitalization, Other)
  Sender: FDA-Public Use
  Company Number: US-ASTRAZENECA-2020SE18690

PATIENT
  Age: 26150 Day
  Sex: Male
  Weight: 90.3 kg

DRUGS (3)
  1. METFORMIN [Concomitant]
     Active Substance: METFORMIN HYDROCHLORIDE
  2. FARXIGA [Suspect]
     Active Substance: DAPAGLIFLOZIN PROPANEDIOL
     Indication: TYPE 2 DIABETES MELLITUS
     Dosage: 15.0MG UNKNOWN
     Route: 048
     Dates: start: 20200112, end: 20200128
  3. FARXIGA [Suspect]
     Active Substance: DAPAGLIFLOZIN PROPANEDIOL
     Indication: CARDIAC FAILURE CONGESTIVE
     Dosage: 15.0MG UNKNOWN
     Route: 048
     Dates: start: 20200112, end: 20200128

REACTIONS (21)
  - Polyuria [Recovering/Resolving]
  - Hypertension [Unknown]
  - Lipase increased [Unknown]
  - Diabetes mellitus inadequate control [Recovered/Resolved]
  - Weight decreased [Unknown]
  - Bifascicular block [Unknown]
  - Hyponatraemia [Recovered/Resolved]
  - Syncope [Unknown]
  - Blood glucose increased [Recovering/Resolving]
  - Peripheral vascular disorder [Unknown]
  - Pollakiuria [Unknown]
  - Renal failure [Recovered/Resolved]
  - Fall [Recovering/Resolving]
  - Blood glucose abnormal [Unknown]
  - Cardiac failure congestive [Unknown]
  - Pseudohyponatraemia [Unknown]
  - Pancreatitis [Unknown]
  - Ischaemic cardiomyopathy [Unknown]
  - Atrial fibrillation [Unknown]
  - Dizziness [Recovering/Resolving]
  - Hyperglycaemic hyperosmolar nonketotic syndrome [Unknown]

NARRATIVE: CASE EVENT DATE: 20200131
